FAERS Safety Report 7179869-6 (Version None)
Quarter: 2010Q4

REPORT INFORMATION
  Report Type: 
  Country: None (occurrence: None)
  Receive Date: 20101221
  Receipt Date: 20101215
  Transmission Date: 20110411
  Serious: Yes (Life-Threatening, Hospitalization)
  Sender: FDA-Public Use
  Company Number: ES-JNJFOC-20101205935

PATIENT
  Sex: Male
  Weight: 76 kg

DRUGS (11)
  1. KETOCONAZOLE [Suspect]
     Indication: ILL-DEFINED DISORDER
     Route: 061
  2. DAIVOBET [Concomitant]
     Indication: ILL-DEFINED DISORDER
  3. OMEPRAZOLE [Concomitant]
     Indication: ILL-DEFINED DISORDER
  4. METHOTREXATE [Concomitant]
     Indication: PSORIASIS
  5. METHOTREXATE [Concomitant]
  6. FOLIC ACID [Concomitant]
     Indication: ILL-DEFINED DISORDER
  7. CEMIDON [Concomitant]
     Indication: ILL-DEFINED DISORDER
  8. HYDROXYZINE [Concomitant]
     Indication: ILL-DEFINED DISORDER
  9. CLORAZEPATE DIPOTASSIUM [Concomitant]
     Indication: ILL-DEFINED DISORDER
  10. DAIVONEX [Concomitant]
     Indication: ILL-DEFINED DISORDER
  11. ETORICOXIB [Concomitant]
     Indication: ILL-DEFINED DISORDER

REACTIONS (2)
  - DERMATITIS EXFOLIATIVE [None]
  - PSORIASIS [None]
